FAERS Safety Report 6070030-5 (Version None)
Quarter: 2009Q1

REPORT INFORMATION
  Report Type: 
  Country: None (occurrence: None)
  Receive Date: 20090209
  Receipt Date: 20090128
  Transmission Date: 20090719
  Serious: Yes (Other)
  Sender: FDA-Public Use
  Company Number: PHHY2009BR03443

PATIENT
  Sex: Male
  Weight: 72 kg

DRUGS (12)
  1. EXELON [Suspect]
     Indication: PARKINSON'S DISEASE
     Dosage: 1.5 MG, UNK
     Dates: start: 20061230
  2. EXELON [Suspect]
     Indication: DEMENTIA ALZHEIMER'S TYPE
  3. SEROQUEL [Concomitant]
     Indication: MENTAL DISORDER
     Dosage: 3 TABLETS AT NIGHT
     Route: 048
     Dates: start: 20060501
  4. SEROQUEL [Concomitant]
     Indication: AGGRESSION
  5. A.A.S. [Concomitant]
     Indication: COAGULOPATHY
     Dosage: 1 TABLET IN THE LUNCH
     Route: 048
  6. NATRILIX - SLOW RELEASE [Concomitant]
     Indication: POLYURIA
     Dosage: 1 TABLET AT 10:00 AM
     Route: 048
     Dates: start: 20080401
  7. VENALOT [Concomitant]
     Indication: CARDIOVASCULAR DISORDER
     Dosage: 1 TABLET AT 8:00 AM AND 1 TABLET AT 8:00PM
     Route: 048
     Dates: start: 20030101
  8. CATAFLAM [Concomitant]
     Indication: MASSAGE
     Dosage: UNK
  9. SENNA FRUIT EXTRACT [Concomitant]
     Indication: CONSTIPATION
  10. CASCARA SAGRADA [Concomitant]
     Indication: CONSTIPATION
  11. ALOES EXTRACT [Concomitant]
     Indication: CONSTIPATION
  12. GUAR GUM [Concomitant]
     Indication: CONSTIPATION

REACTIONS (2)
  - ASTHENIA [None]
  - COMMUNICATION DISORDER [None]
